FAERS Safety Report 13037006 (Version 3)
Quarter: 2017Q1

REPORT INFORMATION
  Report Type: Spontaneous
  Country: US (occurrence: US)
  Receive Date: 20161216
  Receipt Date: 20170130
  Transmission Date: 20170428
  Serious: No
  Sender: FDA-Public Use
  Company Number: US-PFIZER INC-2016579427

PATIENT
  Age: 88 Year
  Sex: Female
  Weight: 54 kg

DRUGS (1)
  1. PREMARIN [Suspect]
     Active Substance: ESTROGENS, CONJUGATED
     Indication: DYSPAREUNIA
     Dosage: 1 DF, DAILY
     Route: 067
     Dates: start: 20161210, end: 20161211

REACTIONS (2)
  - Vulvovaginal pain [Recovered/Resolved]
  - Product shape issue [Recovered/Resolved]

NARRATIVE: CASE EVENT DATE: 20161210
